FAERS Safety Report 14071590 (Version 1)
Quarter: 2017Q4

REPORT INFORMATION
  Report Type: Spontaneous
  Country: US (occurrence: US)
  Receive Date: 20171010
  Receipt Date: 20171010
  Transmission Date: 20180321
  Serious: No
  Sender: FDA-Public Use
  Company Number: US-SA-2017SA146967

PATIENT
  Age: 19 Year
  Sex: Male

DRUGS (5)
  1. METHOTREXATE. [Concomitant]
     Active Substance: METHOTREXATE
  2. CLOMIPRAMINE [Concomitant]
     Active Substance: CLOMIPRAMINE
  3. VYVANSE [Concomitant]
     Active Substance: LISDEXAMFETAMINE DIMESYLATE
  4. DUPIXENT [Suspect]
     Active Substance: DUPILUMAB
     Indication: DERMATITIS ATOPIC
     Route: 065
  5. FLUVOXAMINE [Concomitant]
     Active Substance: FLUVOXAMINE

REACTIONS (2)
  - Pruritus [Unknown]
  - Condition aggravated [Unknown]
